FAERS Safety Report 10146787 (Version 2)
Quarter: 2014Q2

REPORT INFORMATION
  Report Type: Spontaneous
  Country: DE (occurrence: None)
  Receive Date: 20140429
  Receipt Date: 20140501
  Transmission Date: 20141212
  Serious: Yes (Other)
  Sender: FDA-Public Use
  Company Number: AUR-APL-2014-05009

PATIENT
  Age: 57 Year
  Sex: Male
  Weight: 99 kg

DRUGS (1)
  1. SIMVASTATIN [Suspect]
     Indication: CORONARY ARTERY DISEASE
     Dosage: 40 MG, 1 IN 1 D, UNKNOWN
     Dates: start: 20131213, end: 201403

REACTIONS (3)
  - Myalgia [None]
  - Abasia [None]
  - Blood creatine phosphokinase MB abnormal [None]
